FAERS Safety Report 4734889-3 (Version None)
Quarter: 2005Q3

REPORT INFORMATION
  Report Type: 
  Country: None (occurrence: None)
  Receive Date: 20050729
  Receipt Date: 20050720
  Transmission Date: 20060218
  Serious: Yes (Death)
  Sender: FDA-Public Use
  Company Number: 2005-07-1646

PATIENT
  Age: 54 Year
  Sex: Male
  Weight: 156 kg

DRUGS (9)
  1. PEG-INTRON [Suspect]
     Indication: HEPATITIS C
     Dosage: SUBCUTANEOUS
     Route: 058
     Dates: start: 20050223, end: 20050415
  2. REBETOL [Suspect]
     Indication: HEPATITIS C
     Dosage: ORAL
     Route: 048
     Dates: start: 20050223, end: 20050415
  3. ATENOLOL [Concomitant]
  4. CLONIDINE HCL [Concomitant]
  5. HYDROCHLOROTHIAZIDE [Concomitant]
  6. METHADONE HCL [Concomitant]
  7. MORPHINE SULFATE [Concomitant]
  8. TYLENOL (CAPLET) [Concomitant]
  9. XANAX [Concomitant]

REACTIONS (3)
  - ABNORMAL BEHAVIOUR [None]
  - FATIGUE [None]
  - HAEMOGLOBIN DECREASED [None]
